FAERS Safety Report 22389888 (Version 1)
Quarter: 2023Q2

REPORT INFORMATION
  Report Type: Spontaneous
  Country: CA (occurrence: CA)
  Receive Date: 20230531
  Receipt Date: 20230531
  Transmission Date: 20230722
  Serious: Yes (Hospitalization)
  Sender: FDA-Public Use
  Company Number: CA-FreseniusKabi-FK202307256

PATIENT
  Age: 43 Year
  Sex: Female
  Weight: 181.44 kg

DRUGS (1)
  1. AMIODARONE [Suspect]
     Active Substance: AMIODARONE
     Indication: Atrial fibrillation
     Route: 065

REACTIONS (2)
  - Pulmonary fibrosis [Recovering/Resolving]
  - Electrocardiogram QT prolonged [Recovering/Resolving]
